FAERS Safety Report 10031441 (Version 1)
Quarter: 2014Q1

REPORT INFORMATION
  Report Type: Report from Study
  Country: FR (occurrence: FR)
  Receive Date: 20140324
  Receipt Date: 20140324
  Transmission Date: 20141002
  Serious: Yes (Other)
  Sender: FDA-Public Use
  Company Number: FR-ROCHE-1365770

PATIENT
  Sex: Female

DRUGS (22)
  1. RITUXIMAB [Suspect]
     Indication: RHEUMATOID ARTHRITIS
     Route: 042
     Dates: start: 20081001
  2. RITUXIMAB [Suspect]
     Route: 042
     Dates: start: 20081016
  3. RITUXIMAB [Suspect]
     Route: 042
     Dates: start: 20090803
  4. RITUXIMAB [Suspect]
     Route: 042
     Dates: start: 20090817
  5. RITUXIMAB [Suspect]
     Route: 042
     Dates: start: 20100416
  6. RITUXIMAB [Suspect]
     Route: 042
     Dates: start: 20100430
  7. TOCILIZUMAB [Suspect]
     Indication: RHEUMATOID ARTHRITIS
     Dosage: 480MG/MONTH
     Route: 042
     Dates: start: 20120418
  8. ACUPAN [Concomitant]
     Route: 065
     Dates: end: 20100527
  9. METHOTREXATE [Concomitant]
     Dosage: 7.5MG/WEEK
     Route: 065
     Dates: start: 20081001
  10. METHOTREXATE [Concomitant]
     Dosage: 7.5MG/WEEK
     Route: 065
     Dates: start: 20081016
  11. METHOTREXATE [Concomitant]
     Dosage: 7.5MG/WEEK
     Route: 065
     Dates: start: 20090803
  12. METHOTREXATE [Concomitant]
     Dosage: 7.5MG/WEEK
     Route: 065
     Dates: start: 20090817
  13. METHOTREXATE [Concomitant]
     Route: 065
     Dates: start: 20100416
  14. METHOTREXATE [Concomitant]
     Route: 065
     Dates: start: 20100430
  15. METHOTREXATE [Concomitant]
     Route: 065
  16. METHOTREXATE [Concomitant]
     Route: 065
     Dates: start: 20120418
  17. CORTANCYL [Concomitant]
     Route: 065
     Dates: start: 20081001
  18. CORTANCYL [Concomitant]
     Route: 065
     Dates: start: 20081016
  19. CORTANCYL [Concomitant]
     Route: 065
     Dates: start: 20090803
  20. CORTANCYL [Concomitant]
     Route: 065
     Dates: start: 20090817
  21. CORTANCYL [Concomitant]
     Route: 065
     Dates: start: 20100416
  22. CORTANCYL [Concomitant]
     Route: 065
     Dates: start: 20100430

REACTIONS (14)
  - Malaise [Recovered/Resolved]
  - Loss of consciousness [Recovered/Resolved]
  - Ligament rupture [Unknown]
  - Occipital neuralgia [Not Recovered/Not Resolved]
  - Thyroid neoplasm [Not Recovered/Not Resolved]
  - Fall [Recovered/Resolved]
  - Thyroid neoplasm [Unknown]
  - Vertigo [Recovered/Resolved]
  - Vomiting [Recovered/Resolved]
  - Diarrhoea [Recovered/Resolved]
  - Nausea [Recovered/Resolved]
  - Herpes zoster [Recovered/Resolved]
  - Bronchitis [Not Recovered/Not Resolved]
  - Gastroenteritis viral [Recovered/Resolved]
